FAERS Safety Report 20693921 (Version 1)
Quarter: 2022Q2

REPORT INFORMATION
  Report Type: Other
  Country: FR (occurrence: FR)
  Receive Date: 20220411
  Receipt Date: 20220411
  Transmission Date: 20220720
  Serious: Yes (Other)
  Sender: FDA-Public Use
  Company Number: None

PATIENT

DRUGS (1)
  1. TAMOXIFEN [Suspect]
     Active Substance: TAMOXIFEN
     Indication: Breast cancer
     Dosage: 20 MILLIGRAM, QD
     Route: 048
     Dates: start: 201102, end: 2017

REACTIONS (2)
  - Optic neuropathy [Recovered/Resolved with Sequelae]
  - Cataract nuclear [Recovered/Resolved with Sequelae]

NARRATIVE: CASE EVENT DATE: 20170201
